FAERS Safety Report 10400757 (Version 3)
Quarter: 2014Q4

REPORT INFORMATION
  Report Type: Spontaneous
  Country: US (occurrence: US)
  Receive Date: 20140821
  Receipt Date: 20141010
  Transmission Date: 20150528
  Serious: Yes (Hospitalization)
  Sender: FDA-Public Use
  Company Number: US-009507513-2008-177916-NL

PATIENT
  Sex: Female
  Weight: 74.8 kg

DRUGS (10)
  1. VALTREX [Concomitant]
     Active Substance: VALACYCLOVIR HYDROCHLORIDE
     Dosage: UNK DF, UNK
  2. WELLBUTRIN [Concomitant]
     Active Substance: BUPROPION HYDROCHLORIDE
  3. CYMBALTA [Concomitant]
     Active Substance: DULOXETINE HYDROCHLORIDE
     Indication: POST-TRAUMATIC STRESS DISORDER
     Dosage: 60 MG, UNK
  4. TYLENOL [Concomitant]
     Active Substance: ACETAMINOPHEN
     Dosage: 2 TABLETS EVERY 6 HOURS AS NEEDED
  5. LUNESTA [Concomitant]
     Active Substance: ESZOPICLONE
     Indication: POST-TRAUMATIC STRESS DISORDER
  6. FLONASE [Concomitant]
     Active Substance: FLUTICASONE PROPIONATE
     Dosage: DOSE TEXT: AS NEEDED IN SPRING, FREQUENCY: PRN
  7. PULMICORT TURBUHALER [Concomitant]
     Active Substance: BUDESONIDE
     Dosage: DOSE TEXT: AS NEEDED IN SPRING, FREQUENCY: PRN
  8. PROVENTIL [Concomitant]
     Active Substance: ALBUTEROL
     Dosage: DOSE TEXT: AS NEEDED IN SPRING, FREQUENCY: PRN
  9. NUVARING [Suspect]
     Active Substance: ETHINYL ESTRADIOL\ETONOGESTREL
     Indication: CONTRACEPTION
     Dosage: CONTINUING: NO
     Route: 067
     Dates: start: 200703, end: 20070521
  10. IBUPROFEN. [Concomitant]
     Active Substance: IBUPROFEN
     Dosage: EVERY 6 HOURS AS NEEDED

REACTIONS (13)
  - Thrombectomy [Unknown]
  - Hypothyroidism [Unknown]
  - Chest pain [Unknown]
  - Fasciotomy [Unknown]
  - Anaemia [Unknown]
  - Compartment syndrome [Recovered/Resolved]
  - Urinary tract infection [Unknown]
  - Epistaxis [Unknown]
  - Dizziness [Unknown]
  - Chest pain [Unknown]
  - Pelvic venous thrombosis [Recovering/Resolving]
  - Herpes simplex [Unknown]
  - Deep vein thrombosis [Unknown]

NARRATIVE: CASE EVENT DATE: 20070401
